FAERS Safety Report 25328641 (Version 4)
Quarter: 2025Q4

REPORT INFORMATION
  Report Type: Report from Study
  Country: JP (occurrence: JP)
  Receive Date: 20250519
  Receipt Date: 20251224
  Transmission Date: 20260118
  Serious: Yes (Other)
  Sender: UCB
  Company Number: JP-UCBJ-CD202506440UCBPHAPROD

PATIENT
  Age: 36 Year
  Weight: 41.1 kg

DRUGS (12)
  1. FENFLURAMINE HYDROCHLORIDE [Suspect]
     Active Substance: FENFLURAMINE HYDROCHLORIDE
     Indication: Lennox-Gastaut syndrome
     Dosage: 0.03 MILLIGRAM/KILOGRAM, 2X/DAY (BID)
     Route: 061
  2. FENFLURAMINE HYDROCHLORIDE [Suspect]
     Active Substance: FENFLURAMINE HYDROCHLORIDE
     Dosage: 0.05 MILLIGRAM/KILOGRAM, 2X/DAY (BID)
     Route: 061
  3. FENFLURAMINE HYDROCHLORIDE [Suspect]
     Active Substance: FENFLURAMINE HYDROCHLORIDE
     Dosage: 0.03 MILLIGRAM/KILOGRAM, 2X/DAY (BID)
     Route: 061
  4. FENFLURAMINE HYDROCHLORIDE [Suspect]
     Active Substance: FENFLURAMINE HYDROCHLORIDE
     Dosage: 0.02 MILLIGRAM/KILOGRAM, 2X/DAY (BID)
     Route: 061
  5. MYSTAN [Concomitant]
     Active Substance: CLOBAZAM
     Indication: Product used for unknown indication
     Dosage: 5 MILLIGRAM, ONCE DAILY (QD)
     Route: 061
  6. MYSTAN [Concomitant]
     Active Substance: CLOBAZAM
     Dosage: 4 MILLIGRAM, ONCE DAILY (QD)
     Route: 061
  7. PHENYTOIN SODIUM [Concomitant]
     Active Substance: PHENYTOIN SODIUM
     Indication: Lennox-Gastaut syndrome
     Dosage: 140 MILLIGRAM, ONCE DAILY (QD)
     Route: 061
  8. LEVOCARNITINE [Concomitant]
     Active Substance: LEVOCARNITINE
     Indication: Product used for unknown indication
     Dosage: 10 MILLILITER, ONCE DAILY (QD)
     Route: 061
  9. MAGNESIUM OXIDE [Concomitant]
     Active Substance: MAGNESIUM OXIDE
     Indication: Product used for unknown indication
     Dosage: 900 MILLIGRAM, ONCE DAILY (QD)
     Route: 061
  10. MAGNESIUM OXIDE [Concomitant]
     Active Substance: MAGNESIUM OXIDE
     Dosage: 1200 MILLIGRAM, ONCE DAILY (QD)
     Route: 061
  11. OFLOXACIN [Concomitant]
     Active Substance: OFLOXACIN
     Indication: Product used for unknown indication
     Dosage: UNK
  12. BILANOA OD [Concomitant]
     Indication: Product used for unknown indication
     Dosage: 20 MILLIGRAM, ONCE DAILY (QD)
     Route: 061

REACTIONS (4)
  - Epilepsy [Recovering/Resolving]
  - Decreased appetite [Recovered/Resolved]
  - Off label use [Unknown]
  - Prescribed underdose [Unknown]
